FAERS Safety Report 9185890 (Version 1)
Quarter: 2013Q1

REPORT INFORMATION
  Report Type: Spontaneous
  Country: US (occurrence: None)
  Receive Date: 20130321
  Receipt Date: 20130321
  Transmission Date: 20140127
  Serious: Yes (Other)
  Sender: FDA-Public Use
  Company Number: 1641630

PATIENT
  Sex: 0

DRUGS (6)
  1. DOBUTAMINE HYDROCHLORIDE [Suspect]
     Route: 041
  2. FUROSEMIDE [Suspect]
  3. HEPARIN SODIUM [Suspect]
  4. METOPROLOL [Suspect]
  5. MILRINONE [Suspect]
  6. VANCOMYCIN HYDROCHLORIDE [Suspect]

REACTIONS (2)
  - Myocarditis [None]
  - Hypersensitivity [None]
